FAERS Safety Report 4931703-8 (Version None)
Quarter: 2006Q1

REPORT INFORMATION
  Report Type: 
  Country: None (occurrence: None)
  Receive Date: 20060303
  Receipt Date: 20060127
  Transmission Date: 20060701
  Serious: Yes (Other)
  Sender: FDA-Public Use
  Company Number: US-BRISTOL-MYERS SQUIBB COMPANY-13262357

PATIENT
  Age: 54 Year
  Sex: Male
  Weight: 57 kg

DRUGS (12)
  1. ERBITUX [Suspect]
     Indication: COLORECTAL CANCER METASTATIC
     Dosage: INITIAL DOSE 640 MG.
     Route: 042
     Dates: start: 20060101, end: 20060101
  2. BENADRYL [Concomitant]
     Indication: PREMEDICATION
     Route: 042
  3. DEXAMETHASONE SODIUM PHOSPHATE [Concomitant]
     Indication: PREMEDICATION
     Route: 042
  4. FLUOXETINE HCL [Concomitant]
  5. FOLIC ACID [Concomitant]
  6. IRINOTECAN HCL [Concomitant]
     Dosage: ADMINISTERED WEEKLY FOR A 4-WEEK CYCLE.
     Route: 042
  7. M.V.I. [Concomitant]
  8. ONDANSETRON [Concomitant]
     Indication: PREMEDICATION
     Route: 042
  9. OXCARBAZEPINE [Concomitant]
  10. PERCOCET [Concomitant]
  11. THIAMINE [Concomitant]
  12. TRAZODONE HCL [Concomitant]

REACTIONS (1)
  - BLOOD MAGNESIUM DECREASED [None]
